FAERS Safety Report 6236906-0 (Version None)
Quarter: 2009Q2

REPORT INFORMATION
  Report Type: 
  Country: None (occurrence: None)
  Receive Date: 20090619
  Receipt Date: 20090609
  Transmission Date: 20091009
  Serious: Yes (Hospitalization, Other)
  Sender: FDA-Public Use
  Company Number: JP-PFIZER INC-2009227676

PATIENT

DRUGS (2)
  1. ZOLOFT [Suspect]
     Dosage: UNK
     Route: 048
     Dates: start: 20090311
  2. ROHYPNOL [Concomitant]

REACTIONS (4)
  - CONVULSION [None]
  - HAEMORRHAGE SUBCUTANEOUS [None]
  - LOSS OF CONSCIOUSNESS [None]
  - PYREXIA [None]
